FAERS Safety Report 5519073-8 (Version None)
Quarter: 2007Q4

REPORT INFORMATION
  Report Type: 
  Country: None (occurrence: None)
  Receive Date: 20071114
  Receipt Date: 20071114
  Transmission Date: 20080405
  Serious: No
  Sender: FDA-Public Use
  Company Number: None

PATIENT

DRUGS (2)
  1. UROXATRAL [Suspect]
     Dosage: TABLET, EXTENDED RELEASE
  2. UROTROL [Suspect]

REACTIONS (1)
  - MEDICATION ERROR [None]
